FAERS Safety Report 22286675 (Version 7)
Quarter: 2023Q4

REPORT INFORMATION
  Report Type: Other
  Country: IT (occurrence: None)
  Receive Date: 20230505
  Receipt Date: 20231212
  Transmission Date: 20240109
  Serious: Yes (Other)
  Sender: FDA-Public Use
  Company Number: IT-ROCHE-2698681

PATIENT
  Age: 57 Year
  Sex: Male

DRUGS (2)
  1. OBINUTUZUMAB [Suspect]
     Active Substance: OBINUTUZUMAB
     Indication: Follicular lymphoma
     Dosage: ON 15/JUL/2019, INDUCTION TREATMENT START. NUMBER OF CYCLES RECEIVED (AT STUDY ENTRY): 9
     Route: 042
     Dates: start: 20190715
  2. DOBETIN [Concomitant]
     Dates: start: 20210824

REACTIONS (4)
  - Hypogammaglobulinaemia [Recovered/Resolved]
  - Neutropenia [Recovered/Resolved]
  - Vitamin B12 deficiency [Recovered/Resolved]
  - Hypogammaglobulinaemia [Recovered/Resolved]

NARRATIVE: CASE EVENT DATE: 20200610
